FAERS Safety Report 23851850 (Version 4)
Quarter: 2024Q4

REPORT INFORMATION
  Report Type: Spontaneous
  Country: JP (occurrence: JP)
  Receive Date: 20240514
  Receipt Date: 20241128
  Transmission Date: 20250115
  Serious: Yes (Other)
  Sender: ABBVIE
  Company Number: JP-ABBVIE-5752597

PATIENT
  Age: 58 Year
  Sex: Female

DRUGS (5)
  1. VENCLEXTA [Suspect]
     Active Substance: VENETOCLAX
     Indication: Acute myeloid leukaemia
     Dosage: FORM STRENGTH: 100 MG
     Route: 048
  2. VENCLEXTA [Suspect]
     Active Substance: VENETOCLAX
     Indication: Acute myeloid leukaemia
     Dosage: FORM STRENGTH: 100 MG
     Route: 048
  3. VENCLEXTA [Suspect]
     Active Substance: VENETOCLAX
     Indication: Acute myeloid leukaemia
     Dosage: FORM STRENGTH: 100 MG
     Route: 048
  4. CYTARABINE [Concomitant]
     Active Substance: CYTARABINE
     Indication: Acute myeloid leukaemia
     Dosage: LOW DOSE
  5. AZACITIDINE [Concomitant]
     Active Substance: AZACITIDINE
     Indication: Acute myeloid leukaemia
     Route: 058

REACTIONS (1)
  - Allogenic stem cell transplantation [Unknown]
